FAERS Safety Report 7679699-2 (Version None)
Quarter: 2011Q3

REPORT INFORMATION
  Report Type: 
  Country: None (occurrence: None)
  Receive Date: 20110809
  Receipt Date: 20110725
  Transmission Date: 20111222
  Serious: Yes (Hospitalization)
  Sender: FDA-Public Use
  Company Number: LTI2011A00226

PATIENT
  Age: 74 Year
  Sex: Male

DRUGS (10)
  1. FENOFIBRATE [Concomitant]
  2. DIAMICRON(GLICLAZIDE) [Concomitant]
  3. JOSIR(TAMSULOSIN HYDROCHLORIDE) [Concomitant]
  4. JANUVIA(SITAGLIPTAN PHOSPHATE) [Concomitant]
  5. ACTOS [Suspect]
     Indication: TYPE 2 DIABETES MELLITUS
     Dosage: 30 MG (30 MG,1 IN 1 D) ;15 MG (15 MG, 1 IN 1 D) ;30 MG (30 MG,1 IN 1 D) ,15 MG (15 MG,1 IN 1 D) ORAL
     Route: 048
     Dates: start: 20040401, end: 20040923
  6. ACTOS [Suspect]
     Indication: TYPE 2 DIABETES MELLITUS
     Dosage: 30 MG (30 MG,1 IN 1 D) ;15 MG (15 MG, 1 IN 1 D) ;30 MG (30 MG,1 IN 1 D) ,15 MG (15 MG,1 IN 1 D) ORAL
     Route: 048
     Dates: start: 20071220, end: 20110210
  7. ACTOS [Suspect]
     Indication: TYPE 2 DIABETES MELLITUS
     Dosage: 30 MG (30 MG,1 IN 1 D) ;15 MG (15 MG, 1 IN 1 D) ;30 MG (30 MG,1 IN 1 D) ,15 MG (15 MG,1 IN 1 D) ORAL
     Route: 048
     Dates: start: 20070524, end: 20071220
  8. ACTOS [Suspect]
     Indication: TYPE 2 DIABETES MELLITUS
     Dosage: 30 MG (30 MG,1 IN 1 D) ;15 MG (15 MG, 1 IN 1 D) ;30 MG (30 MG,1 IN 1 D) ,15 MG (15 MG,1 IN 1 D) ORAL
     Route: 048
     Dates: start: 20110210, end: 20110513
  9. STAGID(METFORMIN EMBONATE) [Concomitant]
  10. GLUCOPHAGE [Concomitant]

REACTIONS (1)
  - TRANSITIONAL CELL CARCINOMA [None]
